FAERS Safety Report 5902558-X (Version None)
Quarter: 2008Q3

REPORT INFORMATION
  Report Type: 
  Country: None (occurrence: None)
  Receive Date: 20080925
  Receipt Date: 20080912
  Transmission Date: 20090109
  Serious: Yes (Hospitalization)
  Sender: FDA-Public Use
  Company Number: 238316J08USA

PATIENT
  Age: 51 Year
  Sex: Female
  Weight: 65.8 kg

DRUGS (6)
  1. REBIF [Suspect]
     Indication: MULTIPLE SCLEROSIS
     Dosage: 44 MCG, 3 IN 1 WEEKS, SUBCUTANEOUS
     Route: 058
     Dates: start: 20080805, end: 20080829
  2. NEURONTIN [Concomitant]
  3. DEPAKOTE [Concomitant]
  4. DETROL [Concomitant]
  5. PAXIL [Concomitant]
  6. SIMVASTATIN [Concomitant]

REACTIONS (2)
  - COLITIS [None]
  - PAIN [None]
